FAERS Safety Report 5297357-9 (Version None)
Quarter: 2007Q2

REPORT INFORMATION
  Report Type: 
  Country: None (occurrence: None)
  Receive Date: 20070409
  Receipt Date: 20070328
  Transmission Date: 20071010
  Serious: Yes (Other)
  Sender: FDA-Public Use
  Company Number: GXKR2007GB03129

PATIENT
  Sex: Male
  Weight: 74 kg

DRUGS (2)
  1. ALLOPURINOL [Suspect]
     Dosage: 100 MG, UNK
     Dates: start: 20070302
  2. CYCLOSPORINE [Concomitant]

REACTIONS (2)
  - DRUG LEVEL INCREASED [None]
  - LOSS OF CONSCIOUSNESS [None]
